FAERS Safety Report 23027415 (Version 1)
Quarter: 2023Q4

REPORT INFORMATION
  Report Type: Spontaneous
  Country: US (occurrence: US)
  Receive Date: 20231004
  Receipt Date: 20231004
  Transmission Date: 20240110
  Serious: No
  Sender: FDA-Public Use
  Company Number: US-MELINTA THERAPEUTICS, LLC-US-MLNT-23-00368

PATIENT
  Age: 68 Year
  Sex: Female

DRUGS (4)
  1. KIMYRSA [Suspect]
     Active Substance: ORITAVANCIN DIPHOSPHATE
     Indication: Localised infection
     Dosage: 1200 MILLIGRAM, SINGLE
     Route: 041
     Dates: start: 20230414, end: 20230414
  2. BACTRIM [Concomitant]
     Active Substance: SULFAMETHOXAZOLE\TRIMETHOPRIM
     Indication: Localised infection
     Dosage: UNK, UNK
     Route: 065
  3. CIPRO [Concomitant]
     Active Substance: CIPROFLOXACIN HYDROCHLORIDE
     Indication: Localised infection
     Dosage: UNK, UNK
     Route: 065
  4. CLINDAMYCIN [Concomitant]
     Active Substance: CLINDAMYCIN
     Indication: Localised infection
     Dosage: UNK UNK, UNK
     Route: 065

REACTIONS (4)
  - Arthropathy [Recovered/Resolved]
  - Paraesthesia oral [Recovered/Resolved]
  - Infusion related reaction [Recovered/Resolved]
  - Incorrect product administration duration [Recovered/Resolved]

NARRATIVE: CASE EVENT DATE: 20230414
